FAERS Safety Report 18671589 (Version 5)
Quarter: 2021Q1

REPORT INFORMATION
  Report Type: Spontaneous
  Country: FR (occurrence: FR)
  Receive Date: 20201228
  Receipt Date: 20210203
  Transmission Date: 20210419
  Serious: Yes (Other)
  Sender: FDA-Public Use
  Company Number: FR-JNJFOC-20201233494

PATIENT
  Age: 15 Year
  Sex: Female
  Weight: 41 kg

DRUGS (8)
  1. OXYGEN. [Concomitant]
     Active Substance: OXYGEN
     Indication: PULMONARY ARTERIAL HYPERTENSION
  2. VELETRI [Suspect]
     Active Substance: EPOPROSTENOL
     Indication: PULMONARY ARTERIAL HYPERTENSION
     Route: 042
  3. OXYGEN. [Concomitant]
     Active Substance: OXYGEN
     Indication: VASCULAR RESISTANCE PULMONARY INCREASED
  4. DOBUTAMINE [Suspect]
     Active Substance: DOBUTAMINE HYDROCHLORIDE
     Indication: RIGHT VENTRICULAR FAILURE
     Route: 065
  5. NITRIC OXIDE. [Concomitant]
     Active Substance: NITRIC OXIDE
     Indication: PULMONARY ARTERIAL HYPERTENSION
  6. NOREPINEPHRINE. [Suspect]
     Active Substance: NOREPINEPHRINE
     Indication: RIGHT VENTRICULAR FAILURE
     Route: 065
  7. NITRIC OXIDE. [Concomitant]
     Active Substance: NITRIC OXIDE
     Indication: VASCULAR RESISTANCE PULMONARY INCREASED
  8. VELETRI [Suspect]
     Active Substance: EPOPROSTENOL
     Indication: RIGHT VENTRICULAR FAILURE

REACTIONS (3)
  - Drug tolerance decreased [Unknown]
  - Syncope [Unknown]
  - Renal failure [Unknown]
